FAERS Safety Report 8120848-X (Version None)
Quarter: 2012Q1

REPORT INFORMATION
  Report Type: 
  Country: None (occurrence: None)
  Receive Date: 20120208
  Receipt Date: 20111228
  Transmission Date: 20120608
  Serious: Yes (Hospitalization)
  Sender: FDA-Public Use
  Company Number: US-BAYER-2012-000033

PATIENT
  Age: 26 Year
  Sex: Female
  Weight: 91 kg

DRUGS (3)
  1. IBUPROFEN [Concomitant]
     Dosage: AS NEEDED
     Route: 048
     Dates: start: 20080128
  2. ACETAMINOPHEN [Concomitant]
     Dosage: AS NEEDED
     Route: 048
     Dates: start: 20080128
  3. YAZ [Suspect]
     Indication: CONTRACEPTION
     Dosage: UNK
     Dates: start: 20071101, end: 20080301

REACTIONS (2)
  - BILIARY COLIC [None]
  - CHOLECYSTITIS ACUTE [None]
